FAERS Safety Report 14260498 (Version 2)
Quarter: 2017Q4

REPORT INFORMATION
  Report Type: Spontaneous
  Country: US (occurrence: US)
  Receive Date: 20171207
  Receipt Date: 20171221
  Transmission Date: 20180321
  Serious: No
  Sender: FDA-Public Use
  Company Number: US-ACTELION-A-NJ2017-163846

PATIENT
  Age: 59 Year
  Sex: Female
  Weight: 111.57 kg

DRUGS (6)
  1. ADEMPAS [Concomitant]
     Active Substance: RIOCIGUAT
  2. OXYGEN. [Concomitant]
     Active Substance: OXYGEN
     Dosage: UNK
  3. OPSUMIT [Suspect]
     Active Substance: MACITENTAN
     Indication: PULMONARY ARTERIAL HYPERTENSION
     Dosage: 10 MG, QD
     Route: 048
  4. CYMBALTA [Concomitant]
     Active Substance: DULOXETINE HYDROCHLORIDE
  5. PREDNISONE. [Concomitant]
     Active Substance: PREDNISONE
  6. OXYGEN. [Concomitant]
     Active Substance: OXYGEN
     Dosage: 3 L/MIN, UNK

REACTIONS (4)
  - Initial insomnia [Unknown]
  - Viral infection [Unknown]
  - Insomnia [Unknown]
  - Middle insomnia [Unknown]
